FAERS Safety Report 6122295-9 (Version None)
Quarter: 2009Q1

REPORT INFORMATION
  Report Type: 
  Country: None (occurrence: None)
  Receive Date: 20090316
  Receipt Date: 20090306
  Transmission Date: 20090719
  Serious: Yes (Hospitalization)
  Sender: FDA-Public Use
  Company Number: 2009JP001040

PATIENT
  Age: 38 Year
  Sex: Male
  Weight: 45.9 kg

DRUGS (7)
  1. PROGRAF [Suspect]
     Indication: RENAL TRANSPLANT
     Dosage: 16 MG, UIDQD, ORAL; ORAL
     Route: 048
     Dates: start: 20080311
  2. CELLCEPT [Suspect]
     Indication: RENAL TRANSPLANT
     Dosage: 0.75 MG, BID, ORAL
     Route: 048
     Dates: start: 20080229, end: 20080523
  3. MEDROL [Suspect]
     Indication: RENAL TRANSPLANT
     Dosage: 16 MG; 8 MG, UID/QD, ORAL
     Route: 048
     Dates: start: 20080229
  4. SIMULECT [Suspect]
     Indication: RENAL TRANSPLANT
     Dosage: 20 MG,  UID/QD, IV DRIP; 20 MG, UID/QD, IV DRIP
     Route: 041
     Dates: start: 20080314
  5. SIMULECT [Suspect]
     Indication: RENAL TRANSPLANT
     Dosage: 20 MG,  UID/QD, IV DRIP; 20 MG, UID/QD, IV DRIP
     Route: 041
     Dates: start: 20080318
  6. VENILON (IMMUNOGLOBULIN HUMAN NORMAL) INJECTION [Concomitant]
  7. ZOVIRAX [Concomitant]

REACTIONS (2)
  - HERPES SIMPLEX [None]
  - MENINGITIS ASEPTIC [None]
